FAERS Safety Report 4528494-1 (Version None)
Quarter: 2004Q4

REPORT INFORMATION
  Report Type: 
  Country: None (occurrence: None)
  Receive Date: 20041216
  Receipt Date: 20041206
  Transmission Date: 20050328
  Serious: Yes (Other)
  Sender: FDA-Public Use
  Company Number: 200421982GDDC

PATIENT
  Age: 40 Year
  Sex: Female
  Weight: 53 kg

DRUGS (2)
  1. LANTUS [Suspect]
     Indication: DIABETES MELLITUS
     Dosage: DOSE UNIT: UNITS
     Route: 058
     Dates: start: 20041020
  2. OPTIPEN (INSULIN PUMP) [Suspect]

REACTIONS (5)
  - ANXIETY [None]
  - ARRHYTHMIA [None]
  - EXTRASYSTOLES [None]
  - MENTAL DISORDER [None]
  - STRESS SYMPTOMS [None]
